FAERS Safety Report 22629806 (Version 2)
Quarter: 2024Q3

REPORT INFORMATION
  Report Type: Spontaneous
  Country: US (occurrence: US)
  Receive Date: 20230622
  Receipt Date: 20240703
  Transmission Date: 20241016
  Serious: Yes (Death, Other)
  Sender: RANBAXY
  Company Number: US-SUN PHARMACEUTICAL INDUSTRIES LTD-2023R1-388264

PATIENT
  Sex: Male

DRUGS (1)
  1. YONSA [Suspect]
     Active Substance: ABIRATERONE ACETATE
     Indication: Product used for unknown indication
     Dosage: UNK
     Route: 065

REACTIONS (3)
  - Death [Fatal]
  - Product use issue [Unknown]
  - Product dose omission issue [Unknown]
